FAERS Safety Report 7221716-8 (Version None)
Quarter: 2011Q1

REPORT INFORMATION
  Report Type: 
  Country: None (occurrence: None)
  Receive Date: 20110112
  Receipt Date: 20110104
  Transmission Date: 20110831
  Serious: Yes (Hospitalization)
  Sender: FDA-Public Use
  Company Number: PHHO2010BE19702

PATIENT
  Sex: Male
  Weight: 19.8 kg

DRUGS (7)
  1. BLINDED ACZ885 [Suspect]
     Indication: JUVENILE ARTHRITIS
     Dosage: NO TREATMENT
  2. INDOCIN [Concomitant]
     Dosage: UNK
     Dates: end: 20101225
  3. PLACEBO [Suspect]
     Indication: JUVENILE ARTHRITIS
     Dosage: NO TREATMENT
  4. MEDROL [Concomitant]
  5. ACZ885 [Suspect]
     Indication: JUVENILE ARTHRITIS
     Dosage: 77.2 MG, ONCE/SINGLE
     Dates: start: 20101124
  6. ACZ885 [Suspect]
     Dosage: 79.2 MG, ONCE/SINGLE
     Dates: start: 20101220
  7. BLINDED NO TREATMENT RECEIVED [Suspect]
     Indication: JUVENILE ARTHRITIS
     Dosage: NO TREATMENT

REACTIONS (7)
  - PYREXIA [None]
  - INFLAMMATION [None]
  - ABDOMINAL PAIN UPPER [None]
  - FATIGUE [None]
  - HEPATIC ENZYME INCREASED [None]
  - GASTRITIS [None]
  - MALAISE [None]
